FAERS Safety Report 9795498 (Version 1)
Quarter: 2014Q1

REPORT INFORMATION
  Report Type: Report from Study
  Country: CA (occurrence: CA)
  Receive Date: 20140103
  Receipt Date: 20140103
  Transmission Date: 20141002
  Serious: Yes (Other)
  Sender: FDA-Public Use
  Company Number: CA-JNJFOC-20131217544

PATIENT
  Age: 32 Year
  Sex: Male
  Weight: 104.4 kg

DRUGS (5)
  1. REMICADE [Suspect]
     Indication: CROHN^S DISEASE
     Route: 042
     Dates: start: 20131101
  2. REMICADE [Suspect]
     Indication: CROHN^S DISEASE
     Route: 042
     Dates: start: 20111116
  3. TOPICAL STEROID [Concomitant]
     Route: 061
  4. TYLENOL NUMBER 3 [Concomitant]
     Dosage: #3 PRN
     Route: 065
  5. MORPHINE [Concomitant]
     Dosage: PRN
     Route: 065

REACTIONS (1)
  - Hernia [Not Recovered/Not Resolved]
